FAERS Safety Report 4490992-7 (Version None)
Quarter: 2004Q4

REPORT INFORMATION
  Report Type: 
  Country: None (occurrence: None)
  Receive Date: 20041027
  Receipt Date: 20041013
  Transmission Date: 20050328
  Serious: Yes (Other)
  Sender: FDA-Public Use
  Company Number: 2004238908FR

PATIENT
  Age: 81 Year
  Sex: Male

DRUGS (5)
  1. CELEBREX [Suspect]
     Indication: OSTEOARTHRITIS
     Dosage: 200 MG, QD, ORAL
     Route: 048
     Dates: start: 20040601, end: 20040901
  2. FELODIPINE [Concomitant]
  3. TENSTATEN (CICLETANINE) [Concomitant]
  4. BISOPROLOL FUMARATE [Concomitant]
  5. ZYLORIC [Concomitant]

REACTIONS (2)
  - ARRHYTHMIA [None]
  - CARDIAC FAILURE [None]
